FAERS Safety Report 20040619 (Version 1)
Quarter: 2021Q4

REPORT INFORMATION
  Report Type: Spontaneous
  Country: CA (occurrence: None)
  Receive Date: 20211106
  Receipt Date: 20211106
  Transmission Date: 20220303
  Serious: Yes (Hospitalization, Other)
  Sender: FDA-Public Use
  Company Number: None

PATIENT
  Age: 26 Year
  Sex: Female

DRUGS (1)
  1. KYLEENA [Suspect]
     Active Substance: LEVONORGESTREL
     Indication: Contraception
     Dates: start: 20211014, end: 20211104

REACTIONS (8)
  - Complication of device insertion [None]
  - Embedded device [None]
  - Device dislocation [None]
  - Uterine perforation [None]
  - Anxiety [None]
  - Stress [None]
  - Pain [None]
  - Scar [None]

NARRATIVE: CASE EVENT DATE: 20211014
